FAERS Safety Report 10652992 (Version 1)
Quarter: 2014Q4

REPORT INFORMATION
  Report Type: Spontaneous
  Country: US (occurrence: US)
  Receive Date: 20141215
  Receipt Date: 20141215
  Transmission Date: 20150529
  Serious: Yes (Other)
  Sender: FDA-Public Use
  Company Number: US-GLAXOSMITHKLINE-US2014034891

PATIENT
  Age: 56 Year
  Sex: Female

DRUGS (2)
  1. TANZEUM [Suspect]
     Active Substance: ALBIGLUTIDE
     Indication: DIABETES MELLITUS
     Dosage: UNK
     Dates: start: 20140915, end: 20141208
  2. UNSPECIFIED MEDICATION [Concomitant]
     Active Substance: UNSPECIFIED INGREDIENT

REACTIONS (7)
  - Therapeutic response unexpected [Unknown]
  - Neutrophil count increased [Unknown]
  - Nausea [Unknown]
  - Lipase increased [Unknown]
  - Pancreatitis [Not Recovered/Not Resolved]
  - Abdominal pain upper [Unknown]
  - Discomfort [Unknown]

NARRATIVE: CASE EVENT DATE: 201412
